FAERS Safety Report 15366339 (Version 1)
Quarter: 2018Q3

REPORT INFORMATION
  Report Type: Spontaneous
  Country: US (occurrence: US)
  Receive Date: 20180831
  Receipt Date: 20180831
  Transmission Date: 20181010
  Serious: Yes (Life-Threatening, Hospitalization)
  Sender: FDA-Public Use
  Company Number: None

PATIENT
  Age: 58 Year
  Sex: Male
  Weight: 74.25 kg

DRUGS (8)
  1. METFORMIN HCL [Suspect]
     Active Substance: METFORMIN HYDROCHLORIDE
     Indication: BLOOD GLUCOSE INCREASED
     Dosage: ?          QUANTITY:1 CAPSULE(S);?
     Route: 048
  2. COREY [Concomitant]
  3. PLAVIX [Concomitant]
     Active Substance: CLOPIDOGREL BISULFATE
  4. INSULIN [Suspect]
     Active Substance: INSULIN NOS
  5. CRESOR [Concomitant]
  6. ENTRESTO [Concomitant]
     Active Substance: SACUBITRIL\VALSARTAN
  7. PROTONIX [Concomitant]
     Active Substance: PANTOPRAZOLE SODIUM
  8. ECOTRIN [Concomitant]
     Active Substance: ASPIRIN

REACTIONS (3)
  - Necrotising fasciitis [None]
  - Groin infection [None]
  - Cardiomyopathy [None]

NARRATIVE: CASE EVENT DATE: 20171210
